FAERS Safety Report 9661132 (Version 1)
Quarter: 2013Q4

REPORT INFORMATION
  Report Type: Spontaneous
  Country: US (occurrence: US)
  Receive Date: 20131031
  Receipt Date: 20131031
  Transmission Date: 20140711
  Serious: No
  Sender: FDA-Public Use
  Company Number: US-TEVA-441347USA

PATIENT
  Sex: Female
  Weight: 113.5 kg

DRUGS (2)
  1. PROAIR HFA [Suspect]
     Indication: CHRONIC OBSTRUCTIVE PULMONARY DISEASE
     Dosage: 1 PUFF
     Route: 055
  2. PROAIR HFA [Suspect]
     Indication: ASTHMA

REACTIONS (2)
  - Dysgeusia [Unknown]
  - Chest pain [Not Recovered/Not Resolved]
